FAERS Safety Report 5444177-8 (Version None)
Quarter: 2007Q3

REPORT INFORMATION
  Report Type: 
  Country: None (occurrence: None)
  Receive Date: 20070904
  Receipt Date: 20070904
  Transmission Date: 20080115
  Serious: Yes (Hospitalization)
  Sender: FDA-Public Use
  Company Number: None

PATIENT
  Sex: Male
  Weight: 66 kg

DRUGS (3)
  1. TEMOZOLOMIDE [Suspect]
     Indication: MALIGNANT MELANOMA
     Dosage: 220MG DAILY PO
     Route: 048
     Dates: start: 20070804, end: 20070808
  2. CARBOPLATIN [Suspect]
     Indication: MALIGNANT MELANOMA
     Dosage: 660MG Q21 DAYS IV
     Route: 042
     Dates: start: 20070803
  3. PACLITAXEL [Concomitant]

REACTIONS (5)
  - ABDOMINAL PAIN LOWER [None]
  - CONSTIPATION [None]
  - NAUSEA [None]
  - NEUTROPENIA [None]
  - VOMITING [None]
